FAERS Safety Report 10960671 (Version 1)
Quarter: 2015Q1

REPORT INFORMATION
  Report Type: Spontaneous
  Country: US (occurrence: None)
  Receive Date: 20150326
  Receipt Date: 20150326
  Transmission Date: 20150721
  Serious: No
  Sender: FDA-Public Use
  Company Number: None

PATIENT
  Age: 55 Year
  Sex: Male
  Weight: 86 kg

DRUGS (1)
  1. HEPARIN [Suspect]
     Active Substance: HEPARIN SODIUM
     Indication: ANGIOGRAM
     Dosage: 8,000 UNITS
     Route: 042
     Dates: start: 20150319, end: 20150319

REACTIONS (2)
  - Drug effect decreased [None]
  - Product measured potency issue [None]

NARRATIVE: CASE EVENT DATE: 20150319
